FAERS Safety Report 9999461 (Version 1)
Quarter: 2014Q1

REPORT INFORMATION
  Report Type: Spontaneous
  Country: GB (occurrence: GB)
  Receive Date: 20140312
  Receipt Date: 20140312
  Transmission Date: 20141002
  Serious: Yes (Disabling, Other)
  Sender: FDA-Public Use
  Company Number: GB-B.I. PHARMACEUTICALS,INC./RIDGEFIELD-2014-BI-09748UK

PATIENT
  Age: 63 Year
  Sex: Male
  Weight: 82.55 kg

DRUGS (3)
  1. FLOMAX MR [Suspect]
     Indication: PRODUCT USED FOR UNKNOWN INDICATION
     Route: 065
  2. CONTIFLO [Suspect]
     Indication: BENIGN PROSTATIC HYPERPLASIA
     Route: 048
     Dates: start: 201304, end: 201401
  3. AMITRIPTYLINE [Concomitant]
     Dosage: 10 MG
     Route: 048
     Dates: start: 2010

REACTIONS (1)
  - Amnesia [Not Recovered/Not Resolved]
